FAERS Safety Report 8234402-2 (Version None)
Quarter: 2012Q1

REPORT INFORMATION
  Report Type: 
  Country: None (occurrence: None)
  Receive Date: 20120326
  Receipt Date: 20120322
  Transmission Date: 20120608
  Serious: Yes (Death, Life-Threatening, Hospitalization)
  Sender: FDA-Public Use
  Company Number: IE-JNJFOC-20111107336

PATIENT
  Sex: Male

DRUGS (3)
  1. DURAGESIC-100 [Suspect]
     Route: 062
  2. DURAGESIC-100 [Suspect]
     Indication: BRONCHIAL CARCINOMA
     Route: 062
     Dates: start: 20111028
  3. ORAL OPIOIDS [Concomitant]
     Indication: BRONCHIAL CARCINOMA
     Route: 048

REACTIONS (4)
  - BRONCHIAL CARCINOMA [None]
  - APPLICATION SITE REACTION [None]
  - INADEQUATE ANALGESIA [None]
  - PRODUCT QUALITY ISSUE [None]
